FAERS Safety Report 6965309-6 (Version None)
Quarter: 2010Q3

REPORT INFORMATION
  Report Type: 
  Country: None (occurrence: None)
  Receive Date: 20100903
  Receipt Date: 20100825
  Transmission Date: 20110219
  Serious: Yes (Hospitalization)
  Sender: FDA-Public Use
  Company Number: US-JNJFOC-20100808692

PATIENT
  Sex: Female
  Weight: 82.56 kg

DRUGS (6)
  1. FENTANYL CITRATE [Suspect]
     Indication: PAIN IN EXTREMITY
     Route: 062
  2. FENTANYL CITRATE [Suspect]
     Indication: CANCER PAIN
     Route: 062
  3. FENTANYL CITRATE [Suspect]
     Route: 062
  4. FENTANYL CITRATE [Suspect]
     Route: 062
  5. PLAVIX [Concomitant]
     Indication: ANTICOAGULANT THERAPY
     Route: 048
  6. FEMARA [Concomitant]
     Indication: NEOPLASM MALIGNANT
     Route: 048

REACTIONS (4)
  - ARTERIAL DISORDER [None]
  - CEREBROVASCULAR ACCIDENT [None]
  - INADEQUATE ANALGESIA [None]
  - MALAISE [None]
